FAERS Safety Report 7895380-9 (Version None)
Quarter: 2011Q4

REPORT INFORMATION
  Report Type: 
  Country: None (occurrence: None)
  Receive Date: 20111106
  Receipt Date: 20110826
  Transmission Date: 20120403
  Serious: No
  Sender: FDA-Public Use
  Company Number: US-AMGEN-USASP2011008179

PATIENT
  Age: 69 Year
  Sex: Female

DRUGS (11)
  1. ACTOS [Concomitant]
     Dosage: UNK MG, QD
  2. CALCIUM [Concomitant]
  3. VITAMIN D [Concomitant]
  4. PROLIA [Suspect]
     Indication: OSTEOPOROSIS POSTMENOPAUSAL
     Dosage: 60 MG, Q6MO
     Dates: start: 20110210
  5. FOLIC ACID [Concomitant]
  6. ENBREL [Suspect]
     Indication: PRODUCT USED FOR UNKNOWN INDICATION
     Dosage: UNK
  7. ACIPHEX [Concomitant]
  8. ACTOS [Concomitant]
  9. JANUVIA [Concomitant]
     Dosage: UNK MG, QD
  10. JANUVIA [Concomitant]
  11. METHOTREXATE [Concomitant]

REACTIONS (4)
  - ANXIETY [None]
  - GINGIVAL DISORDER [None]
  - MALAISE [None]
  - BLOOD GLUCOSE INCREASED [None]
